FAERS Safety Report 9010178 (Version 2)
Quarter: 2013Q2

REPORT INFORMATION
  Report Type: Report from Study
  Country: AU (occurrence: AU)
  Receive Date: 20130110
  Receipt Date: 20130507
  Transmission Date: 20140414
  Serious: Yes (Hospitalization)
  Sender: FDA-Public Use
  Company Number: PHHY2013AU001552

PATIENT
  Age: 24 Year
  Sex: Female

DRUGS (2)
  1. CLOZARIL [Suspect]
     Dosage: 300 MG DAILY
     Dates: start: 20080212
  2. CLOZARIL [Suspect]
     Dosage: UNK

REACTIONS (3)
  - Mental impairment [Recovering/Resolving]
  - Poverty of speech [Recovering/Resolving]
  - Hallucination, auditory [Recovering/Resolving]
